FAERS Safety Report 5564539-8 (Version None)
Quarter: 2007Q4

REPORT INFORMATION
  Report Type: 
  Country: None (occurrence: None)
  Receive Date: 20071212
  Receipt Date: 20071130
  Transmission Date: 20080405
  Serious: Yes (Death)
  Sender: FDA-Public Use
  Company Number: 2007JP005220

PATIENT
  Age: 67 Year
  Sex: Male
  Weight: 60 kg

DRUGS (20)
  1. PROGRAF [Suspect]
     Indication: RENAL TRANSPLANT
     Dosage: 1.5 MG, BID, ORAL
     Route: 048
     Dates: start: 20061128, end: 20070413
  2. MEDROL [Suspect]
     Indication: RENAL FAILURE CHRONIC
     Dosage: 4 MG, BID, ORAL
     Route: 048
     Dates: start: 20061203, end: 20070413
  3. MORPHINE HYDROCHLORIDE(MORPHINE HYDROCHLORIDE) INJECTION [Suspect]
  4. CALSLOT (MANIDIPINE HYDROCHLORIDE) TABLET [Concomitant]
  5. ITOROL (ISOSORBIDE MONONITRATE) TABLET [Concomitant]
  6. ZOVIRAX [Concomitant]
  7. BAKTAR (SULFAMETHOXAZOLE, TRIMETHOPRIM) TABLET [Concomitant]
  8. CELLCEPT [Concomitant]
  9. MEVALOTIN (PRAVASTATIN SODIUM) TABLET [Concomitant]
  10. GASTER TABLET [Concomitant]
  11. AMINOLEBAN EN (AMINOACETIC ACID, ALANINE, METHIONINE, PHENYLALANINE, T [Concomitant]
  12. LACTULOSE (LACTULOSE) SYRUP [Concomitant]
  13. KANAMYCIN (KANAMYCIN) CAPSULE [Concomitant]
  14. ENTERONON R (STREPTOCOCCUS FAECALIS, LACTOBACILLUS ACIDOPHILUS, STREPT [Concomitant]
  15. BARACLUDE (CLONIDINE HYDROCHLORIDE) TABLET [Concomitant]
  16. ZEFFIX (LAMIVUDINE) TABLET [Concomitant]
  17. MEROPEN (MEROPENEM) INJECTION [Concomitant]
  18. FUTHAN (NAFAMOSTAT MESILATE) INJECTION [Concomitant]
  19. LASIX (FUROSEMIDE) INJECTION [Concomitant]
  20. ANTHROBIN P (ANTITHROMBIN III) INJECTION [Concomitant]

REACTIONS (10)
  - ACIDOSIS [None]
  - ACNE [None]
  - CARDIAC ARREST [None]
  - CONTINUOUS HAEMODIAFILTRATION [None]
  - DRUG LEVEL INCREASED [None]
  - HEPATITIS B [None]
  - HEPATITIS CHOLESTATIC [None]
  - MULTI-ORGAN FAILURE [None]
  - PANCREATITIS ACUTE [None]
  - SYSTEMIC INFLAMMATORY RESPONSE SYNDROME [None]
